FAERS Safety Report 7275821-0 (Version None)
Quarter: 2011Q1

REPORT INFORMATION
  Report Type: 
  Country: None (occurrence: None)
  Receive Date: 20110124
  Receipt Date: 20110118
  Transmission Date: 20110831
  Serious: Yes (Death, Other)
  Sender: FDA-Public Use
  Company Number: THYM-1001077

PATIENT
  Age: 71 Year
  Sex: Female
  Weight: 64 kg

DRUGS (8)
  1. FILGRASTIM (FILGRASTIME [Concomitant]
  2. PREDNISOLONE [Concomitant]
  3. CYCLOSPORINE [Concomitant]
  4. CEFEPIME [Concomitant]
  5. SULFAMETHOXAZOLE W (SULFAMETHOXAZOLE, TRIMETHOPRIM) [Concomitant]
  6. ITRACONAZOLE [Concomitant]
  7. THYMOGLOBULIN [Suspect]
     Indication: APLASTIC ANAEMIA
     Dosage: 3.5 MG/KG, QD, INTRAVENOUS
     Route: 042
     Dates: start: 20090427, end: 20090501
  8. METHYLPREDNISOLONE [Concomitant]

REACTIONS (6)
  - NO THERAPEUTIC RESPONSE [None]
  - DISEASE PROGRESSION [None]
  - PNEUMONIA [None]
  - HISTIOCYTOSIS HAEMATOPHAGIC [None]
  - WHITE BLOOD CELL COUNT DECREASED [None]
  - SEPSIS [None]
